FAERS Safety Report 18345388 (Version 1)
Quarter: 2020Q4

REPORT INFORMATION
  Report Type: Spontaneous
  Country: AU (occurrence: AU)
  Receive Date: 20201005
  Receipt Date: 20201005
  Transmission Date: 20210114
  Serious: Yes (Other)
  Sender: FDA-Public Use
  Company Number: AU-AMNEAL PHARMACEUTICALS-2020-AMRX-03090

PATIENT

DRUGS (2)
  1. TEMOZOLOMIDE. [Suspect]
     Active Substance: TEMOZOLOMIDE
     Indication: GLIOBLASTOMA MULTIFORME
     Dosage: UNK
     Route: 065
  2. SULFAMETHOXAZOLE AND TRIMETHOPRIM [Suspect]
     Active Substance: SULFAMETHOXAZOLE\TRIMETHOPRIM
     Indication: GLIOBLASTOMA MULTIFORME
     Dosage: UNK
     Route: 065

REACTIONS (3)
  - Nephrogenic diabetes insipidus [Recovering/Resolving]
  - Tubulointerstitial nephritis [Recovering/Resolving]
  - Off label use [Unknown]
